FAERS Safety Report 5831750-8 (Version None)
Quarter: 2008Q3

REPORT INFORMATION
  Report Type: 
  Country: None (occurrence: None)
  Receive Date: 20080803
  Receipt Date: 20080724
  Transmission Date: 20090109
  Serious: Yes (Hospitalization)
  Sender: FDA-Public Use
  Company Number: PHHY2008JP14390

PATIENT
  Sex: Male

DRUGS (9)
  1. TEGRETOL [Suspect]
     Indication: HYPOAESTHESIA
     Dosage: 400 MG/DAY
     Route: 048
     Dates: start: 20080702, end: 20080704
  2. TEGRETOL [Suspect]
     Dosage: 100 MG
     Route: 048
  3. TEGRETOL [Suspect]
     Dosage: 50 MG
     Route: 048
     Dates: start: 20080715
  4. LANSOPRAZOLE [Concomitant]
     Dosage: 30 MG
     Route: 048
     Dates: start: 20070911
  5. RISUMIC [Concomitant]
     Dosage: 20 MG
     Route: 048
     Dates: start: 20070726
  6. CYANOCOBALAMIN [Concomitant]
     Dosage: 1500 UG
     Route: 048
     Dates: start: 20080523
  7. NEUROTROPIN [Concomitant]
     Dosage: 4 DF
     Route: 048
     Dates: start: 20071212
  8. GASCON [Concomitant]
     Dosage: 120 MG
     Route: 048
     Dates: start: 20080529
  9. PROSCILLARIDIN [Concomitant]
     Dosage: 8 MG
     Route: 048
     Dates: start: 20080602

REACTIONS (9)
  - CONDITION AGGRAVATED [None]
  - DECREASED APPETITE [None]
  - HAEMATOCRIT [None]
  - HAEMOGLOBIN DECREASED [None]
  - HYPOAESTHESIA [None]
  - HYPONATRAEMIA [None]
  - MALAISE [None]
  - NAUSEA [None]
  - RED BLOOD CELL COUNT DECREASED [None]
